FAERS Safety Report 10963741 (Version 2)
Quarter: 2015Q2

REPORT INFORMATION
  Report Type: Spontaneous
  Country: JP (occurrence: JP)
  Receive Date: 20150328
  Receipt Date: 20150605
  Transmission Date: 20150821
  Serious: Yes (Other)
  Sender: FDA-Public Use
  Company Number: JP-ROCHE-1557010

PATIENT
  Age: 9 Decade
  Sex: Female

DRUGS (3)
  1. BONVIVA [Suspect]
     Active Substance: IBANDRONATE SODIUM
     Indication: OSTEOPOROSIS
     Route: 042
  2. TRAMCET [Suspect]
     Active Substance: ACETAMINOPHEN\TRAMADOL
     Indication: PRODUCT USED FOR UNKNOWN INDICATION
     Route: 065
  3. LYRICA [Suspect]
     Active Substance: PREGABALIN
     Indication: PRODUCT USED FOR UNKNOWN INDICATION
     Dosage: DOSAGE IS UNCERTAIN.
     Route: 065

REACTIONS (1)
  - Anaemia [Recovered/Resolved]
